FAERS Safety Report 4589795-4 (Version None)
Quarter: 2005Q1

REPORT INFORMATION
  Report Type: 
  Country: None (occurrence: None)
  Receive Date: 20050223
  Receipt Date: 20041112
  Transmission Date: 20050727
  Serious: Yes (Hospitalization)
  Sender: FDA-Public Use
  Company Number: FR-GLAXOSMITHKLINE-B0357919A

PATIENT
  Sex: Female

DRUGS (2)
  1. RETROVIR [Suspect]
     Indication: ANTIVIRAL PROPHYLAXIS
     Route: 065
     Dates: start: 20040909, end: 20041009
  2. TRIZIVIR [Suspect]
     Indication: HIV INFECTION

REACTIONS (4)
  - ANAEMIA [None]
  - DRUG EXPOSURE DURING PREGNANCY [None]
  - PREMATURE BABY [None]
  - THROMBOCYTOPENIA [None]
